FAERS Safety Report 9093582 (Version 2)
Quarter: 2013Q2

REPORT INFORMATION
  Report Type: Spontaneous
  Country: US (occurrence: US)
  Receive Date: 20130201
  Receipt Date: 20130416
  Transmission Date: 20140414
  Serious: No
  Sender: FDA-Public Use
  Company Number: US-ASTRAZENECA-2013SE02262

PATIENT
  Age: 52 Year
  Sex: Female
  Weight: 80.7 kg

DRUGS (8)
  1. NEXIUM [Suspect]
     Indication: GASTROOESOPHAGEAL REFLUX DISEASE
     Route: 048
     Dates: start: 201201, end: 201212
  2. OMEPRAZOLE OTC [Suspect]
     Route: 048
  3. LORATIDINE [Concomitant]
  4. FLUTICASONE [Concomitant]
  5. SINGULAIR [Concomitant]
  6. ADVAIR [Concomitant]
  7. ALBUTEROL [Concomitant]
  8. SIMVASTATIN [Concomitant]

REACTIONS (10)
  - Asthma [Unknown]
  - Bronchitis [Unknown]
  - Malaise [Unknown]
  - Nausea [Unknown]
  - Abdominal discomfort [Unknown]
  - Abdominal pain upper [Unknown]
  - Intentional drug misuse [Unknown]
  - Intentional drug misuse [Unknown]
  - Intentional drug misuse [Unknown]
  - Drug ineffective [Unknown]
